FAERS Safety Report 16024479 (Version 9)
Quarter: 2020Q1

REPORT INFORMATION
  Report Type: Report from Study
  Country: US (occurrence: US)
  Receive Date: 20190301
  Receipt Date: 20200314
  Transmission Date: 20200409
  Serious: Yes (Hospitalization)
  Sender: FDA-Public Use
  Company Number: US-ACTELION-A-NJ2017-155757

PATIENT
  Age: 55 Year
  Sex: Male
  Weight: 152.38 kg

DRUGS (7)
  1. UPTRAVI [Suspect]
     Active Substance: SELEXIPAG
     Dosage: UNK
     Route: 048
  2. XARELTO [Concomitant]
     Active Substance: RIVAROXABAN
  3. OPSUMIT [Suspect]
     Active Substance: MACITENTAN
     Indication: PULMONARY HYPERTENSION
     Dosage: 10 MG, QD
     Route: 048
     Dates: start: 20161221
  4. UPTRAVI [Suspect]
     Active Substance: SELEXIPAG
     Dosage: 1000 UNK, UNK
     Route: 048
  5. ADCIRCA [Concomitant]
     Active Substance: TADALAFIL
  6. UPTRAVI [Suspect]
     Active Substance: SELEXIPAG
     Dosage: 1200 MCG, BID
     Route: 048
  7. UPTRAVI [Suspect]
     Active Substance: SELEXIPAG
     Indication: PULMONARY HYPERTENSION
     Dosage: 800 MCG, BID
     Route: 048

REACTIONS (21)
  - Pulmonary hypertension [Unknown]
  - Asthenia [Recovering/Resolving]
  - Bronchitis [Unknown]
  - Malaise [Unknown]
  - Oedema peripheral [Not Recovered/Not Resolved]
  - Acute kidney injury [Not Recovered/Not Resolved]
  - Anaemia [Unknown]
  - Hospitalisation [Unknown]
  - Lung disorder [Unknown]
  - Headache [Not Recovered/Not Resolved]
  - Diarrhoea [Not Recovered/Not Resolved]
  - Cough [Not Recovered/Not Resolved]
  - Oedema [Not Recovered/Not Resolved]
  - Blood creatinine increased [Not Recovered/Not Resolved]
  - Decreased appetite [Unknown]
  - Right ventricular failure [Not Recovered/Not Resolved]
  - Dyspnoea [Not Recovered/Not Resolved]
  - Dyspnoea exertional [Not Recovered/Not Resolved]
  - Atrial fibrillation [Unknown]
  - Asthma [Unknown]
  - Abdominal distension [Unknown]

NARRATIVE: CASE EVENT DATE: 201703
